FAERS Safety Report 14159784 (Version 3)
Quarter: 2017Q4

REPORT INFORMATION
  Report Type: Spontaneous
  Country: US (occurrence: US)
  Receive Date: 20171103
  Receipt Date: 20171204
  Transmission Date: 20180321
  Serious: No
  Sender: FDA-Public Use
  Company Number: US-ACTELION-A-US2017-161900

PATIENT
  Age: 55 Year
  Sex: Male

DRUGS (8)
  1. UPTRAVI [Suspect]
     Active Substance: SELEXIPAG
     Indication: PRODUCT USED FOR UNKNOWN INDICATION
     Dosage: UNK
     Route: 048
  2. POTASSIUM [Concomitant]
     Active Substance: POTASSIUM
  3. METOLAZONE. [Concomitant]
     Active Substance: METOLAZONE
  4. AMBRISENTAN [Suspect]
     Active Substance: AMBRISENTAN
     Indication: PRODUCT USED FOR UNKNOWN INDICATION
     Dosage: 10 MG, UNK
     Route: 065
     Dates: start: 20141119
  5. FLONASE [Concomitant]
     Active Substance: FLUTICASONE PROPIONATE
  6. BUMEX [Concomitant]
     Active Substance: BUMETANIDE
  7. ALDACTONE [Concomitant]
     Active Substance: SPIRONOLACTONE
  8. MIRALAX [Concomitant]
     Active Substance: POLYETHYLENE GLYCOL 3350

REACTIONS (4)
  - Dyspepsia [Recovered/Resolved]
  - Nausea [Unknown]
  - Headache [Recovered/Resolved]
  - Abdominal discomfort [Not Recovered/Not Resolved]
